FAERS Safety Report 25362228 (Version 1)
Quarter: 2025Q2

REPORT INFORMATION
  Report Type: Spontaneous
  Country: US (occurrence: None)
  Receive Date: 20250523
  Receipt Date: 20250523
  Transmission Date: 20250716
  Serious: Yes (Other)
  Sender: FDA-CTU
  Company Number: None

PATIENT
  Age: 28 Year
  Sex: Female
  Weight: 58.95 kg

DRUGS (19)
  1. GUANFACINE HYDROCHLORIDE [Suspect]
     Active Substance: GUANFACINE HYDROCHLORIDE
     Indication: Attention deficit hyperactivity disorder
     Dosage: OTHER QUANTITY : 30 TABLET(S);?FREQUENCY : AT BEDTIME;?
     Route: 060
     Dates: start: 20250318, end: 20250520
  2. BENLYSTA [Concomitant]
     Active Substance: BELIMUMAB
  3. Hydroxychoroquine [Concomitant]
  4. MINOXIDIL [Concomitant]
     Active Substance: MINOXIDIL
  5. PRAZOSIN [Concomitant]
     Active Substance: PRAZOSIN
  6. WAKIX [Concomitant]
     Active Substance: PITOLISANT HYDROCHLORIDE
  7. VYVANSE [Concomitant]
     Active Substance: LISDEXAMFETAMINE DIMESYLATE
  8. Amphetamine Salt Combo IR [Concomitant]
  9. PREGABALIN [Concomitant]
     Active Substance: PREGABALIN
  10. TRAZODONE [Concomitant]
     Active Substance: TRAZODONE HYDROCHLORIDE
  11. Ayovy [Concomitant]
  12. PROPRANOLOL HYDROCHLORIDE [Concomitant]
     Active Substance: PROPRANOLOL HYDROCHLORIDE
  13. OMEPRAZOLE [Concomitant]
     Active Substance: OMEPRAZOLE
  14. Meibo Eye Drops [Concomitant]
  15. Ryaltris Nasal Spray [Concomitant]
  16. LEVALBUTEROL TARTRATE [Concomitant]
     Active Substance: LEVALBUTEROL TARTRATE
  17. SPIRONOLACTONE [Concomitant]
     Active Substance: SPIRONOLACTONE
  18. NEXTSTELLIS [Concomitant]
     Active Substance: DROSPIRENONE\ESTETROL MONOHYDRATE
  19. NEXTSTELLIS [Concomitant]
     Active Substance: DROSPIRENONE\ESTETROL MONOHYDRATE

REACTIONS (2)
  - Depression [None]
  - Insomnia [None]

NARRATIVE: CASE EVENT DATE: 20250520
